FAERS Safety Report 9743288 (Version 3)
Quarter: 2015Q3

REPORT INFORMATION
  Report Type: Spontaneous
  Country: US (occurrence: US)
  Receive Date: 20131210
  Receipt Date: 20150804
  Transmission Date: 20151125
  Serious: No
  Sender: FDA-Public Use
  Company Number: US-GILEAD-2009-0025074

PATIENT
  Age: 84 Year
  Sex: Male
  Weight: 70.31 kg

DRUGS (9)
  1. LETAIRIS [Suspect]
     Active Substance: AMBRISENTAN
     Indication: PULMONARY ARTERIAL HYPERTENSION
     Route: 048
     Dates: start: 20090909
  2. ALLOPURINOL. [Concomitant]
     Active Substance: ALLOPURINOL
  3. TYLENOL [Concomitant]
     Active Substance: ACETAMINOPHEN
  4. OMEPRAZOLE. [Concomitant]
     Active Substance: OMEPRAZOLE
  5. FUROSEMIDE. [Concomitant]
     Active Substance: FUROSEMIDE
  6. SIMVASTATIN. [Concomitant]
     Active Substance: SIMVASTATIN
  7. CALCITROL [Concomitant]
     Active Substance: CALCITRIOL
  8. METOPROLOL [Concomitant]
     Active Substance: METOPROLOL
  9. WARFARIN [Concomitant]
     Active Substance: WARFARIN

REACTIONS (2)
  - Dyspnoea [Unknown]
  - Fluid retention [Unknown]
